FAERS Safety Report 25252522 (Version 4)
Quarter: 2025Q3

REPORT INFORMATION
  Report Type: Report from Study
  Country: CA (occurrence: CA)
  Receive Date: 20250429
  Receipt Date: 20250723
  Transmission Date: 20251020
  Serious: Yes (Other)
  Sender: ALEXION PHARMACEUTICALS
  Company Number: CA-AstraZeneca-CH-00856791A

PATIENT
  Sex: Female

DRUGS (9)
  1. SOLIRIS [Suspect]
     Active Substance: ECULIZUMAB
     Indication: Paroxysmal nocturnal haemoglobinuria
     Dosage: 600 MILLIGRAM, QW
     Dates: start: 20091130, end: 20091228
  2. SOLIRIS [Suspect]
     Active Substance: ECULIZUMAB
     Dosage: 900 MILLIGRAM, Q2W
     Dates: start: 20100111
  3. ULTOMIRIS [Suspect]
     Active Substance: RAVULIZUMAB-CWVZ
     Indication: Paroxysmal nocturnal haemoglobinuria
     Dates: start: 20250606, end: 20250606
  4. ULTOMIRIS [Suspect]
     Active Substance: RAVULIZUMAB-CWVZ
  5. MIRENA [Concomitant]
     Active Substance: LEVONORGESTREL
     Route: 065
  6. EXJADE [Concomitant]
     Active Substance: DEFERASIROX
     Dosage: 500 MILLIGRAM, QW
  7. CYCLOSPORINE [Concomitant]
     Active Substance: CYCLOSPORINE
     Dosage: 100 MILLIGRAM, QD
  8. IVERMECTIN [Concomitant]
     Active Substance: IVERMECTIN
  9. Black seed oil [Concomitant]

REACTIONS (1)
  - Lung disorder [Unknown]
